FAERS Safety Report 8883256 (Version 2)
Quarter: 2013Q1

REPORT INFORMATION
  Report Type: Spontaneous
  Country: US (occurrence: US)
  Receive Date: 20121102
  Receipt Date: 20130204
  Transmission Date: 20140127
  Serious: Yes (Hospitalization)
  Sender: FDA-Public Use
  Company Number: US-GENZYME-FABR-1002818

PATIENT
  Age: 68 Year
  Sex: Male
  Weight: 73.9 kg

DRUGS (6)
  1. FABRAZYME [Suspect]
     Indication: FABRY^S DISEASE
     Dosage: 0.9 MG/KG, Q2W
     Route: 042
     Dates: start: 200905
  2. BENADRYL [Concomitant]
     Indication: PREMEDICATION
     Route: 065
  3. NORVASC [Concomitant]
     Indication: HYPERTENSION
     Dosage: 5 MG, QD
     Route: 065
     Dates: start: 201105
  4. METOPROLOL SUCCINATE [Concomitant]
     Indication: HYPERTENSION
     Dosage: 50 MG, QD
     Route: 065
     Dates: start: 201211
  5. SIMVASTATIN [Concomitant]
     Indication: HYPERCHOLESTEROLAEMIA
     Dosage: 10 MG, QD
     Route: 065
     Dates: start: 201105
  6. AVODART [Concomitant]
     Indication: URINARY TRACT INFECTION
     Dosage: 0.5 MG, QD
     Route: 048
     Dates: start: 201105

REACTIONS (1)
  - Device malfunction [Recovered/Resolved]
